FAERS Safety Report 9413078 (Version 1)
Quarter: 2013Q3

REPORT INFORMATION
  Report Type: Spontaneous
  Country: ES (occurrence: ES)
  Receive Date: 20130722
  Receipt Date: 20130722
  Transmission Date: 20140515
  Serious: Yes (Other)
  Sender: FDA-Public Use
  Company Number: ES-BAYER-2013-087259

PATIENT
  Age: 31 Year
  Sex: Female
  Weight: 74.5 kg

DRUGS (4)
  1. ACTIRA [Suspect]
     Indication: COUGH
     Dosage: 400 MG, UNK
     Route: 048
     Dates: start: 20130711, end: 20130711
  2. CEFUROXIMA GI PROB [Concomitant]
     Dosage: UNK
     Dates: start: 20130531
  3. OMEPRAZOL [Concomitant]
     Dosage: UNK
     Dates: start: 20121025
  4. AZITROMICINA GI SE [Concomitant]
     Dosage: UNK
     Dates: start: 20121019

REACTIONS (4)
  - Hypoglycaemia [Recovered/Resolved]
  - Nausea [Recovered/Resolved]
  - Vomiting [Recovered/Resolved]
  - Malaise [Recovered/Resolved]
